FAERS Safety Report 5474397-8 (Version None)
Quarter: 2007Q3

REPORT INFORMATION
  Report Type: 
  Country: None (occurrence: None)
  Receive Date: 20070904
  Receipt Date: 20061017
  Transmission Date: 20080115
  Serious: Yes (Other)
  Sender: FDA-Public Use
  Company Number: 36861

PATIENT
  Sex: Male
  Weight: 89.8122 kg

DRUGS (9)
  1. CYCLOPENTOLATE HYDROCHLORIDE [Suspect]
     Indication: IRITIS
     Dosage: ( ONCE OPHT)
     Dates: start: 20060728
  2. PROSCAR [Concomitant]
  3. MOBIC [Concomitant]
  4. PERCOCET [Concomitant]
  5. FOLIC ACID [Concomitant]
  6. METHOTREXATE [Concomitant]
  7. SYNTHROID [Concomitant]
  8. PREDNISONE [Concomitant]
  9. REMICADE [Concomitant]

REACTIONS (1)
  - GRAND MAL CONVULSION [None]
